FAERS Safety Report 5581488-X (Version None)
Quarter: 2008Q1

REPORT INFORMATION
  Report Type: 
  Country: None (occurrence: None)
  Receive Date: 20080103
  Receipt Date: 20080103
  Transmission Date: 20080703
  Serious: Yes (Hospitalization)
  Sender: FDA-Public Use
  Company Number: None

PATIENT
  Age: 44 Year
  Sex: Female
  Weight: 107.9561 kg

DRUGS (1)
  1. CHANTIX [Suspect]
     Indication: SMOKING CESSATION THERAPY
     Dosage: THE BLUE PILL TWICE A DAY PO
     Route: 048
     Dates: start: 20071106, end: 20071218

REACTIONS (3)
  - BLOOD PRESSURE INCREASED [None]
  - CHEST PAIN [None]
  - DYSPNOEA [None]
